FAERS Safety Report 15328905 (Version 4)
Quarter: 2019Q1

REPORT INFORMATION
  Report Type: Spontaneous
  Country: CA (occurrence: CA)
  Receive Date: 20180829
  Receipt Date: 20190122
  Transmission Date: 20190417
  Serious: Yes (Other)
  Sender: FDA-Public Use
  Company Number: CA-CELLTRION INC.-2018CA021662

PATIENT

DRUGS (6)
  1. INFLECTRA [Suspect]
     Active Substance: INFLIXIMAB-DYYB
     Dosage: 5 MG/KG, (300 MG), ON 0,2,6 WEEKS THEN EVERY 8 WEEKS
     Route: 042
     Dates: start: 20181119
  2. INFLECTRA [Suspect]
     Active Substance: INFLIXIMAB-DYYB
     Dosage: 5 MG/KG, (300 MG EVERY 0, 2, 6 WEEKS, THEN EVERY 8 WEEKS);
     Route: 042
     Dates: start: 20180917
  3. INFLECTRA [Suspect]
     Active Substance: INFLIXIMAB-DYYB
     Dosage: 5 MG/KG, (300 MG), ON 0,2,6 WEEKS THEN EVERY 8 WEEKS
     Route: 042
     Dates: start: 20180822
  4. METHOTREXATE. [Concomitant]
     Active Substance: METHOTREXATE
     Dosage: UNK
  5. INFLECTRA [Suspect]
     Active Substance: INFLIXIMAB-DYYB
     Indication: CROHN^S DISEASE
     Dosage: 5 MG/KG, (300 MG EVERY 0, 2, 6 WEEKS, THEN EVERY 8 WEEKS);
     Route: 042
     Dates: start: 20180807
  6. INFLECTRA [Suspect]
     Active Substance: INFLIXIMAB-DYYB
     Dosage: 5 MG/KG, (300 MG), ON 0, 2,6 WEEKS, THEN EVERY 8 WEEKS
     Route: 042
     Dates: start: 20190114

REACTIONS (8)
  - Blood pressure fluctuation [Unknown]
  - Anal fissure [Unknown]
  - Dehydration [Unknown]
  - Product dose omission [Unknown]
  - Abscess [Unknown]
  - Poor venous access [Unknown]
  - Condition aggravated [Unknown]
  - Weight increased [Unknown]

NARRATIVE: CASE EVENT DATE: 20180807
